FAERS Safety Report 24904907 (Version 2)
Quarter: 2025Q1

REPORT INFORMATION
  Report Type: Spontaneous
  Country: GB (occurrence: GB)
  Receive Date: 20250130
  Receipt Date: 20250204
  Transmission Date: 20250409
  Serious: Yes (Other)
  Sender: TEVA
  Company Number: GB-MHRA-TPP10569521C10211402YC1737650088831

PATIENT
  Age: 16 Year
  Sex: Female
  Weight: 75 kg

DRUGS (6)
  1. PROPRANOLOL [Suspect]
     Active Substance: PROPRANOLOL HYDROCHLORIDE
     Indication: Ill-defined disorder
     Route: 048
     Dates: start: 20241203
  2. PROPRANOLOL [Concomitant]
     Active Substance: PROPRANOLOL HYDROCHLORIDE
     Indication: Ill-defined disorder
     Dosage: TAKE ONE TABLET TWICE A DAY FOR THE PREVENTION , DAILY DOSE: 2 DOSAGE FORM DAILY, DURATION: 55 DAYS
     Route: 065
     Dates: start: 20241128, end: 20250121
  3. FLUCONAZOLE [Concomitant]
     Active Substance: FLUCONAZOLE
     Indication: Ill-defined disorder
     Dosage: TAKE ONE CAPSULE, DAILY DOSE: 1 DOSAGE FORM DAILY
     Route: 065
     Dates: start: 20241105, end: 20241106
  4. LANSOPRAZOLE [Concomitant]
     Active Substance: LANSOPRAZOLE
     Indication: Ill-defined disorder
     Dosage: TAKE ONE ONCE DAILY, DAILY DOSE: 1 DOSAGE FORM DAILY
     Route: 065
     Dates: start: 20250121
  5. DESOGESTREL [Concomitant]
     Active Substance: DESOGESTREL
     Indication: Ill-defined disorder
     Route: 065
     Dates: start: 20240815
  6. ZOLMITRIPTAN [Concomitant]
     Active Substance: ZOLMITRIPTAN
     Indication: Ill-defined disorder
     Route: 065
     Dates: start: 20240321

REACTIONS (1)
  - Peripheral swelling [Recovered/Resolved]

NARRATIVE: CASE EVENT DATE: 20250123
